FAERS Safety Report 25771671 (Version 1)
Quarter: 2025Q3

REPORT INFORMATION
  Report Type: Spontaneous
  Country: US (occurrence: US)
  Receive Date: 20250908
  Receipt Date: 20250908
  Transmission Date: 20251021
  Serious: No
  Sender: DOMPE FARMACEUTICI
  Company Number: US-FARMAPROD-202505-1540

PATIENT
  Sex: Female

DRUGS (12)
  1. OXERVATE [Suspect]
     Active Substance: CENEGERMIN-BKBJ
     Indication: Neurotrophic keratopathy
     Route: 047
     Dates: start: 20250428
  2. PRILOSEC OTC [Concomitant]
     Active Substance: OMEPRAZOLE MAGNESIUM
  3. TEARS LUBRICANT [Concomitant]
     Active Substance: GLYCERIN\HYPROMELLOSES\POLYETHYLENE GLYCOL 400
  4. POTASSIUM [Concomitant]
     Active Substance: POTASSIUM
  5. MELATONIN [Concomitant]
     Active Substance: MELATONIN
  6. TYLENOL EXTRA STRENGTH [Concomitant]
     Active Substance: ACETAMINOPHEN
  7. GABAPENTIN [Concomitant]
     Active Substance: GABAPENTIN
  8. SENNA [Concomitant]
     Active Substance: SENNOSIDES
  9. TYLENOL 8HR [Concomitant]
     Active Substance: ACETAMINOPHEN
  10. DIETARY SUPPLEMENT [Concomitant]
     Active Substance: DIETARY SUPPLEMENT
  11. FUROSEMIDE [Concomitant]
     Active Substance: FUROSEMIDE
  12. ELIQUIS [Concomitant]
     Active Substance: APIXABAN

REACTIONS (4)
  - Ocular discomfort [Unknown]
  - Eye pain [Unknown]
  - Foreign body in eye [Unknown]
  - Eye irritation [Unknown]
